FAERS Safety Report 14009476 (Version 1)
Quarter: 2017Q3

REPORT INFORMATION
  Report Type: Spontaneous
  Country: US (occurrence: US)
  Receive Date: 20170925
  Receipt Date: 20170925
  Transmission Date: 20171128
  Serious: No
  Sender: FDA-Public Use
  Company Number: US-SUNOVION-2017SUN004070

PATIENT
  Age: 39 Year
  Sex: Female

DRUGS (7)
  1. LATUDA [Suspect]
     Active Substance: LURASIDONE HYDROCHLORIDE
     Dosage: UNK MG, DOSING TITRATION
     Route: 048
  2. LAMOTRIGINE. [Concomitant]
     Active Substance: LAMOTRIGINE
  3. DULOXETINE. [Concomitant]
     Active Substance: DULOXETINE
  4. LATUDA [Suspect]
     Active Substance: LURASIDONE HYDROCHLORIDE
     Dosage: 120 MG, UNK
     Route: 048
     Dates: start: 201601
  5. LITHIUM. [Concomitant]
     Active Substance: LITHIUM
  6. CLONAZEPAM. [Concomitant]
     Active Substance: CLONAZEPAM
  7. LATUDA [Suspect]
     Active Substance: LURASIDONE HYDROCHLORIDE
     Indication: BIPOLAR DISORDER
     Dosage: 60 MG, UNK
     Route: 048

REACTIONS (1)
  - Tardive dyskinesia [Not Recovered/Not Resolved]
